FAERS Safety Report 9782708 (Version 2)
Quarter: 2013Q4

REPORT INFORMATION
  Report Type: Report from Study
  Country: FR (occurrence: FR)
  Receive Date: 20131226
  Receipt Date: 20131226
  Transmission Date: 20140711
  Serious: Yes (Other)
  Sender: FDA-Public Use
  Company Number: PHHO2012FR005197

PATIENT
  Age: 48 Year
  Sex: Male
  Weight: 94 kg

DRUGS (3)
  1. SOM230 [Suspect]
     Indication: ACROMEGALY
     Dosage: 40 MG, UNK
     Route: 030
     Dates: start: 20120119
  2. METFORMIN [Concomitant]
     Indication: DIABETES MELLITUS
     Dosage: 500 MG, BID
     Route: 048
     Dates: start: 20110401, end: 20120316
  3. METFORMIN [Concomitant]
     Dosage: 1000 MG, BID
     Route: 048
     Dates: start: 20120317, end: 20120413

REACTIONS (1)
  - Diabetes mellitus [Not Recovered/Not Resolved]
